FAERS Safety Report 9838924 (Version 1)
Quarter: 2014Q1

REPORT INFORMATION
  Report Type: Spontaneous
  Country: IN (occurrence: IN)
  Receive Date: 20140123
  Receipt Date: 20140123
  Transmission Date: 20141002
  Serious: Yes (Other)
  Sender: FDA-Public Use
  Company Number: IN-ABBVIE-14P-078-1191657-00

PATIENT
  Age: 6 Year
  Sex: Male
  Weight: 17 kg

DRUGS (2)
  1. LEVOTHYROXINE [Suspect]
     Indication: HYPOTHYROIDISM
  2. LEVOTHYROXINE [Suspect]

REACTIONS (2)
  - Accidental exposure to product [Recovered/Resolved]
  - Toxicity to various agents [Recovered/Resolved]
